FAERS Safety Report 8359264-4 (Version None)
Quarter: 2012Q2

REPORT INFORMATION
  Report Type: 
  Country: None (occurrence: None)
  Receive Date: 20120514
  Receipt Date: 20120514
  Transmission Date: 20120825
  Serious: Yes (Other)
  Sender: FDA-Public Use
  Company Number: None

PATIENT
  Age: 49 Year
  Sex: Female
  Weight: 58.9676 kg

DRUGS (1)
  1. SUBOXONE [Suspect]
     Indication: PAIN
     Dosage: 2 FILMS STRIPS DAILY SL
     Route: 060
     Dates: start: 20111019, end: 20111020

REACTIONS (4)
  - STOMATITIS [None]
  - EATING DISORDER [None]
  - SLEEP DISORDER [None]
  - SPEECH DISORDER [None]
